FAERS Safety Report 7265458-1 (Version None)
Quarter: 2011Q1

REPORT INFORMATION
  Report Type: 
  Country: None (occurrence: None)
  Receive Date: 20110131
  Receipt Date: 20110126
  Transmission Date: 20110831
  Serious: Yes (Hospitalization)
  Sender: FDA-Public Use
  Company Number: US-ABBOTT-11P-163-0701024-00

PATIENT
  Sex: Female
  Weight: 72.64 kg

DRUGS (4)
  1. UNKNOWN BIRTH CONTROL PILL [Concomitant]
     Indication: PRODUCT USED FOR UNKNOWN INDICATION
  2. HUMIRA [Suspect]
     Indication: CROHN'S DISEASE
     Route: 058
     Dates: start: 20101204
  3. MORPHINE [Suspect]
     Indication: ABDOMINAL PAIN
     Route: 042
     Dates: start: 20110125, end: 20110125
  4. MULTI-VITAMIN [Concomitant]
     Indication: PRODUCT USED FOR UNKNOWN INDICATION

REACTIONS (5)
  - COLITIS [None]
  - BLOOD POTASSIUM DECREASED [None]
  - URTICARIA [None]
  - PRURITUS [None]
  - DEHYDRATION [None]
